FAERS Safety Report 10884951 (Version 1)
Quarter: 2015Q1

REPORT INFORMATION
  Report Type: Spontaneous
  Country: US (occurrence: None)
  Receive Date: 20150227
  Receipt Date: 20150227
  Transmission Date: 20150721
  Serious: Yes (Other)
  Sender: FDA-Public Use
  Company Number: None

PATIENT
  Age: 3 Day
  Sex: Female
  Weight: 4.06 kg

DRUGS (4)
  1. LEVETIRACETAM. [Suspect]
     Active Substance: LEVETIRACETAM
     Indication: SEIZURE
     Route: 042
     Dates: start: 20141014
  2. ACYCLOVIR. [Concomitant]
     Active Substance: ACYCLOVIR
  3. AMPICILLIN [Concomitant]
     Active Substance: AMPICILLIN
  4. CEFOTAXIME [Concomitant]
     Active Substance: CEFOTAXIME\CEFOTAXIME SODIUM

REACTIONS (2)
  - Ventricular extrasystoles [None]
  - Condition aggravated [None]

NARRATIVE: CASE EVENT DATE: 20141014
